FAERS Safety Report 8168489-2 (Version None)
Quarter: 2012Q1

REPORT INFORMATION
  Report Type: 
  Country: None (occurrence: None)
  Receive Date: 20120227
  Receipt Date: 20120227
  Transmission Date: 20120608
  Serious: Yes (Life-Threatening)
  Sender: FDA-Public Use
  Company Number: None

PATIENT
  Age: 9 Year
  Sex: Male
  Weight: 31.751 kg

DRUGS (1)
  1. VYVANSE [Suspect]
     Indication: ATTENTION DEFICIT/HYPERACTIVITY DISORDER
     Dosage: 20.0 MG
     Route: 048
     Dates: start: 20120211, end: 20120224

REACTIONS (3)
  - TINNITUS [None]
  - SUICIDAL IDEATION [None]
  - ABDOMINAL PAIN UPPER [None]
